FAERS Safety Report 9457815 (Version 2)
Quarter: 2013Q3

REPORT INFORMATION
  Report Type: Spontaneous
  Country: VE (occurrence: VE)
  Receive Date: 20130814
  Receipt Date: 20130917
  Transmission Date: 20140515
  Serious: Yes (Other)
  Sender: FDA-Public Use
  Company Number: PHHY2013VE086126

PATIENT
  Age: 13 Year
  Sex: Female

DRUGS (4)
  1. SANDIMMUN [Suspect]
     Indication: CORNEAL TRANSPLANT
     Dosage: 1 DRP, Q6H
     Dates: start: 201212, end: 201304
  2. ARTIFICIAL TEARS [Concomitant]
     Dates: start: 201212
  3. DOBET [Concomitant]
     Indication: CORNEAL TRANSPLANT
     Dates: start: 201212
  4. TOPTEAR [Concomitant]
     Indication: CORNEAL TRANSPLANT
     Dates: start: 201212

REACTIONS (2)
  - Corneal opacity [Recovering/Resolving]
  - Ocular hyperaemia [Recovered/Resolved]
